FAERS Safety Report 11243564 (Version 1)
Quarter: 2015Q3

REPORT INFORMATION
  Report Type: Spontaneous
  Country: US (occurrence: None)
  Receive Date: 20150702
  Receipt Date: 20150702
  Transmission Date: 20151125
  Serious: Yes (Hospitalization)
  Sender: FDA-Public Use
  Company Number: None

PATIENT
  Age: 66 Year
  Sex: Male
  Weight: 64.41 kg

DRUGS (9)
  1. JANUVIA [Concomitant]
     Active Substance: SITAGLIPTIN PHOSPHATE
  2. FAMOTIDINE. [Concomitant]
     Active Substance: FAMOTIDINE
  3. METFORMIN [Concomitant]
     Active Substance: METFORMIN HYDROCHLORIDE
  4. ENALAPRIL [Concomitant]
     Active Substance: ENALAPRIL
  5. ASPIRIN 81 MG [Concomitant]
     Active Substance: ASPIRIN
  6. INVOKANA [Suspect]
     Active Substance: CANAGLIFLOZIN
     Indication: BLOOD GLUCOSE INCREASED
     Dosage: 1 PILL
     Route: 048
     Dates: start: 20150522, end: 20150626
  7. GLIMEPIRIDE. [Concomitant]
     Active Substance: GLIMEPIRIDE
  8. INVOKANA [Suspect]
     Active Substance: CANAGLIFLOZIN
     Indication: GLYCOSYLATED HAEMOGLOBIN INCREASED
     Dosage: 1 PILL
     Route: 048
     Dates: start: 20150522, end: 20150626
  9. ATOVASTATIN [Concomitant]
     Active Substance: ATORVASTATIN

REACTIONS (2)
  - Abdominal pain [None]
  - Ketoacidosis [None]

NARRATIVE: CASE EVENT DATE: 20150626
